FAERS Safety Report 21016278 (Version 3)
Quarter: 2022Q3

REPORT INFORMATION
  Report Type: Spontaneous
  Country: US (occurrence: US)
  Receive Date: 20220628
  Receipt Date: 20220722
  Transmission Date: 20221027
  Serious: No
  Sender: FDA-Public Use
  Company Number: US-BAYER-2022A085908

PATIENT
  Age: 85 Year
  Sex: Male

DRUGS (4)
  1. MIRALAX [Suspect]
     Active Substance: POLYETHYLENE GLYCOL 3350
     Indication: Gastrointestinal disorder
     Dosage: UNK
     Route: 048
     Dates: start: 2022, end: 2022
  2. WARFARIN [Concomitant]
     Active Substance: WARFARIN
  3. LITHIUM CARBONATE [Concomitant]
     Active Substance: LITHIUM CARBONATE
  4. DULOXETINE [Concomitant]
     Active Substance: DULOXETINE

REACTIONS (2)
  - Off label use [None]
  - Poor quality product administered [None]
